FAERS Safety Report 5914366-4 (Version None)
Quarter: 2008Q4

REPORT INFORMATION
  Report Type: 
  Country: None (occurrence: None)
  Receive Date: 20081009
  Receipt Date: 20081001
  Transmission Date: 20090506
  Serious: Yes (Other)
  Sender: FDA-Public Use
  Company Number: CA-PFIZER INC-2008083202

PATIENT
  Age: 47 Year
  Sex: Female

DRUGS (2)
  1. DEPO-PROVERA SUSPENSION/INJ [Suspect]
     Dosage: FREQ:FIRST INJECTION
     Dates: start: 20030101, end: 20030101
  2. DEPO-PROVERA SUSPENSION/INJ [Suspect]
     Dosage: FREQ:MOST RECENT INJECTION
     Dates: start: 20080731, end: 20080731

REACTIONS (3)
  - BLOOD PRESSURE INCREASED [None]
  - BREAST MASS [None]
  - WEIGHT INCREASED [None]
